FAERS Safety Report 7145485-5 (Version None)
Quarter: 2010Q4

REPORT INFORMATION
  Report Type: 
  Country: None (occurrence: None)
  Receive Date: 20101208
  Receipt Date: 20101203
  Transmission Date: 20110411
  Serious: Yes (Other)
  Sender: FDA-Public Use
  Company Number: TW-ROCHE-745974

PATIENT
  Sex: Female

DRUGS (3)
  1. MIRCERA [Suspect]
     Route: 065
     Dates: start: 20100601
  2. RECORMON [Suspect]
     Route: 065
     Dates: start: 20080701, end: 20100601
  3. ARANESP [Suspect]
     Route: 065
     Dates: start: 20080201, end: 20080701

REACTIONS (1)
  - HAEMATOCRIT DECREASED [None]
